FAERS Safety Report 20634756 (Version 9)
Quarter: 2025Q2

REPORT INFORMATION
  Report Type: Report from Study
  Country: US (occurrence: US)
  Receive Date: 20220325
  Receipt Date: 20250602
  Transmission Date: 20250716
  Serious: Yes (Hospitalization, Other)
  Sender: TAKEDA
  Company Number: US-SHIRE-US201909945AA

PATIENT
  Sex: Female

DRUGS (4)
  1. HUMAN IMMUNOGLOBULIN G [Suspect]
     Active Substance: HUMAN IMMUNOGLOBULIN G
     Indication: Immunodeficiency common variable
     Dosage: 6 GRAM, 1/WEEK
  2. HUMAN IMMUNOGLOBULIN G [Suspect]
     Active Substance: HUMAN IMMUNOGLOBULIN G
     Indication: Primary immunodeficiency syndrome
  3. HUMAN IMMUNOGLOBULIN G [Suspect]
     Active Substance: HUMAN IMMUNOGLOBULIN G
  4. IMURAN [Concomitant]
     Active Substance: AZATHIOPRINE

REACTIONS (20)
  - Pneumonia [Not Recovered/Not Resolved]
  - Palpitations [Unknown]
  - Dizziness [Unknown]
  - Conduction disorder [Unknown]
  - Respiratory tract infection [Unknown]
  - Urinary tract infection [Not Recovered/Not Resolved]
  - Syncope [Unknown]
  - Disturbance in attention [Unknown]
  - Multiple allergies [Unknown]
  - Increased bronchial secretion [Unknown]
  - Cough [Unknown]
  - Fatigue [Unknown]
  - Intervertebral disc degeneration [Unknown]
  - Gastrointestinal disorder [Unknown]
  - Stress [Unknown]
  - Nervous system disorder [Unknown]
  - COVID-19 [Unknown]
  - Sinusitis [Unknown]
  - Pain in extremity [Unknown]
  - Arthralgia [Unknown]
